FAERS Safety Report 21436064 (Version 1)
Quarter: 2022Q4

REPORT INFORMATION
  Report Type: Spontaneous
  Country: SG (occurrence: SG)
  Receive Date: 20221010
  Receipt Date: 20221010
  Transmission Date: 20230113
  Serious: Yes (Hospitalization, Other)
  Sender: FDA-Public Use
  Company Number: SG-SA-SAC20221006000198

PATIENT
  Age: 73 Year
  Sex: Male

DRUGS (19)
  1. GEMCITABINE HYDROCHLORIDE [Suspect]
     Active Substance: GEMCITABINE HYDROCHLORIDE
     Indication: Follicular lymphoma
     Dosage: 1000 MG, 1X
     Route: 042
     Dates: start: 20220719, end: 20220719
  2. OXALIPLATIN [Suspect]
     Active Substance: OXALIPLATIN
     Indication: Follicular lymphoma stage III
     Dosage: 100 MG, 1X
     Route: 042
     Dates: start: 20220719, end: 20220719
  3. RITUXIMAB [Suspect]
     Active Substance: RITUXIMAB
     Indication: Follicular lymphoma stage III
     Dosage: 375 MG, 1X
     Route: 042
     Dates: start: 20220719, end: 20220719
  4. ALLOPURINOL [Concomitant]
     Active Substance: ALLOPURINOL
     Dates: start: 20220718
  5. AMOXICILLIN [Concomitant]
     Active Substance: AMOXICILLIN
     Dates: start: 20220706
  6. ATORVASTATIN [Concomitant]
     Active Substance: ATORVASTATIN
     Dates: start: 20220718
  7. BENZYDAMINE [Concomitant]
     Active Substance: BENZYDAMINE
     Dates: start: 20220704
  8. BISOPROLOL [Concomitant]
     Active Substance: BISOPROLOL
     Indication: Hypertension
     Dates: start: 20220718
  9. CHLORTETRACYCLINE [Concomitant]
     Active Substance: CHLORTETRACYCLINE
     Dates: start: 20220704
  10. DEXAMETHASONE [Concomitant]
     Active Substance: DEXAMETHASONE
     Dosage: 8MILLIGRAM
     Route: 048
     Dates: start: 20220719, end: 20220719
  11. DIPHENHYDRAMINE [Concomitant]
     Active Substance: DIPHENHYDRAMINE
     Dates: start: 20220719, end: 20220719
  12. FAMOTIDINE [Concomitant]
     Active Substance: FAMOTIDINE
     Dates: start: 20220719, end: 20220719
  13. HYDROCORTISONE [Concomitant]
     Active Substance: HYDROCORTISONE
     Route: 048
     Dates: start: 20220719, end: 20220719
  14. ONDANSETRON [Concomitant]
     Active Substance: ONDANSETRON
     Dates: start: 20220719, end: 20220719
  15. ACETAMINOPHEN [Concomitant]
     Active Substance: ACETAMINOPHEN
     Dates: start: 20220719, end: 20220719
  16. PEGFILGRASTIM [Concomitant]
     Active Substance: PEGFILGRASTIM
     Dates: start: 20220720, end: 20220720
  17. PREDNISOLONE [Concomitant]
     Active Substance: PREDNISOLONE
     Indication: Prophylaxis
     Dates: start: 20220718, end: 20220718
  18. SODIUM CHLORIDE [Concomitant]
     Active Substance: SODIUM CHLORIDE
     Dates: start: 20220719, end: 20220719
  19. ZOVIRAX [Concomitant]
     Active Substance: ACYCLOVIR
     Dates: start: 20220628

REACTIONS (4)
  - Vision blurred [Recovering/Resolving]
  - Cytomegalovirus infection [Recovering/Resolving]
  - Acute kidney injury [Recovering/Resolving]
  - Vitreous floaters [Recovering/Resolving]

NARRATIVE: CASE EVENT DATE: 20220810
